FAERS Safety Report 13239409 (Version 2)
Quarter: 2017Q1

REPORT INFORMATION
  Report Type: Spontaneous
  Country: IT (occurrence: IT)
  Receive Date: 20170216
  Receipt Date: 20170303
  Transmission Date: 20170428
  Serious: Yes (Other)
  Sender: FDA-Public Use
  Company Number: IT-PFIZER INC-2017062424

PATIENT
  Age: 40 Year
  Sex: Male

DRUGS (4)
  1. FLUOXETINE [Interacting]
     Active Substance: FLUOXETINE HYDROCHLORIDE
     Indication: MAJOR DEPRESSION
     Dosage: 20 MG, DAILY
  2. ALPRAZOLAM. [Suspect]
     Active Substance: ALPRAZOLAM
     Indication: MAJOR DEPRESSION
     Dosage: 1.5 MG, DAILY
  3. HALOPERIDOL. [Interacting]
     Active Substance: HALOPERIDOL
     Indication: MAJOR DEPRESSION
     Dosage: 1 MG, DAILY
  4. FLUOXETINE [Interacting]
     Active Substance: FLUOXETINE HYDROCHLORIDE
     Dosage: 20 MG, ALTERNATE DAY

REACTIONS (9)
  - Drug interaction [Recovered/Resolved]
  - Urinary retention [Recovered/Resolved]
  - Palpitations [Recovered/Resolved]
  - Extrapyramidal disorder [Recovered/Resolved]
  - Anticholinergic syndrome [Recovered/Resolved]
  - Insomnia [Recovered/Resolved]
  - Tremor [Recovered/Resolved]
  - Mydriasis [Recovered/Resolved]
  - Restlessness [Recovered/Resolved]
